FAERS Safety Report 4550610-6 (Version None)
Quarter: 2004Q4

REPORT INFORMATION
  Report Type: 
  Country: None (occurrence: None)
  Receive Date: 20041227
  Receipt Date: 20040923
  Transmission Date: 20050328
  Serious: No
  Sender: FDA-Public Use
  Company Number: 04P-163-0274479-00

PATIENT
  Age: 55 Year
  Sex: Female
  Weight: 90.7194 kg

DRUGS (9)
  1. HUMIRA [Suspect]
     Indication: RHEUMATOID ARTHRITIS
     Dosage: 40 MG, 1 IN 1 WK, SUBCUTANEOUS
     Route: 058
     Dates: start: 20040910
  2. PREDNISONE [Concomitant]
  3. NAPROXEN [Concomitant]
  4. MULTI-VITAMINS [Concomitant]
  5. TOCOPHEROL CONCENTRATE CAP [Concomitant]
  6. ASCORBIC ACID [Concomitant]
  7. ESTRACE [Concomitant]
  8. PROGESTERONE [Concomitant]
  9. ESOMEPRAZOLE [Concomitant]

REACTIONS (1)
  - INJECTION SITE ERYTHEMA [None]
